FAERS Safety Report 23778593 (Version 3)
Quarter: 2024Q2

REPORT INFORMATION
  Report Type: Spontaneous
  Country: AU (occurrence: None)
  Receive Date: 20240424
  Receipt Date: 20240523
  Transmission Date: 20240716
  Serious: Yes (Hospitalization, Disabling, Other)
  Sender: FDA-Public Use
  Company Number: AU-ROCHE-3546140

PATIENT
  Age: 85 Year
  Sex: Female

DRUGS (1)
  1. VABYSMO [Suspect]
     Active Substance: FARICIMAB\FARICIMAB-SVOA
     Indication: Age-related macular degeneration
     Dosage: LEFT EYE. 6 INJECTIONS PRIOR TO EVENT. ON 02/FEB/2024, TOOK THE MOST RECENT DOSE OF FARICIMAB.
     Route: 065
     Dates: start: 20230628

REACTIONS (3)
  - Retinal occlusive vasculitis [Not Recovered/Not Resolved]
  - Blindness [Not Recovered/Not Resolved]
  - Vasculitis [Unknown]

NARRATIVE: CASE EVENT DATE: 20240201
